FAERS Safety Report 4954078-7 (Version None)
Quarter: 2006Q1

REPORT INFORMATION
  Report Type: 
  Country: None (occurrence: None)
  Receive Date: 20060327
  Receipt Date: 20060217
  Transmission Date: 20060701
  Serious: Yes (Other)
  Sender: FDA-Public Use
  Company Number: US-GLAXOSMITHKLINE-A0594187A

PATIENT
  Age: 31 Year
  Sex: Female

DRUGS (3)
  1. LAMICTAL [Suspect]
     Indication: BIPOLAR DISORDER
     Dosage: 150MG TWICE PER DAY
     Route: 048
     Dates: start: 20060210, end: 20060215
  2. LEXAPRO [Concomitant]
  3. SEROQUEL [Concomitant]

REACTIONS (2)
  - TREATMENT NONCOMPLIANCE [None]
  - URTICARIA [None]
